FAERS Safety Report 7202205-3 (Version None)
Quarter: 2010Q4

REPORT INFORMATION
  Report Type: 
  Country: None (occurrence: None)
  Receive Date: 20101229
  Receipt Date: 20101221
  Transmission Date: 20110411
  Serious: Yes (Hospitalization)
  Sender: FDA-Public Use
  Company Number: JP-BRISTOL-MYERS SQUIBB COMPANY-15378144

PATIENT
  Age: 61 Year
  Sex: Male
  Weight: 73 kg

DRUGS (9)
  1. ABILIFY [Suspect]
     Indication: DELUSION
     Dosage: ABILIFY TABS 6MG
     Route: 048
     Dates: start: 20100623, end: 20100925
  2. TEGRETOL [Suspect]
     Route: 048
     Dates: start: 20100724, end: 20100922
  3. ITRIZOLE [Suspect]
     Route: 048
     Dates: start: 20100622, end: 20100923
  4. TASMOLIN [Concomitant]
     Dosage: TASMOLIN TABLET
     Dates: end: 20100925
  5. SERENACE [Concomitant]
     Dosage: SERENACE TABLET 3 MG.
     Dates: start: 20100619
  6. SEROQUEL [Concomitant]
     Dosage: SEROQUEL TABS
     Dates: start: 20100604, end: 20100925
  7. ROHYPNOL [Concomitant]
     Dates: end: 20100925
  8. LEXOTAN [Concomitant]
     Dosage: LEXOTAN TAB 2MG.
     Dates: start: 20100619, end: 20100925
  9. CHLORPROMAZINE HCL [Concomitant]
     Dates: start: 20100619, end: 20100922

REACTIONS (1)
  - DRUG RASH WITH EOSINOPHILIA AND SYSTEMIC SYMPTOMS [None]
